FAERS Safety Report 5812177-1 (Version None)
Quarter: 2008Q3

REPORT INFORMATION
  Report Type: 
  Country: None (occurrence: None)
  Receive Date: 20080716
  Receipt Date: 20080709
  Transmission Date: 20090109
  Serious: Yes (Death)
  Sender: FDA-Public Use
  Company Number: JP-AMGEN-US294726

PATIENT
  Sex: Male
  Weight: 68 kg

DRUGS (6)
  1. ENBREL [Suspect]
     Indication: RHEUMATOID ARTHRITIS
     Route: 058
     Dates: start: 20051205, end: 20060215
  2. PLETAL [Concomitant]
     Route: 065
  3. TAKEPRON [Concomitant]
     Route: 065
  4. MICARDIS [Concomitant]
     Route: 065
  5. BUFFERIN [Concomitant]
     Route: 065
  6. CONIEL [Concomitant]
     Route: 065

REACTIONS (1)
  - LUNG NEOPLASM MALIGNANT [None]
